FAERS Safety Report 14968040 (Version 1)
Quarter: 2018Q2

REPORT INFORMATION
  Report Type: Spontaneous
  Country: US (occurrence: US)
  Receive Date: 20180511
  Receipt Date: 20180511
  Transmission Date: 20180711
  Serious: No
  Sender: FDA-Public Use
  Company Number: None

PATIENT
  Age: 35 Year
  Sex: Female
  Weight: 65.25 kg

DRUGS (3)
  1. SMZ/TMP DS 800-160 [Suspect]
     Active Substance: SULFAMETHOXAZOLE\TRIMETHOPRIM
     Indication: URINARY TRACT INFECTION
     Dosage: ?          QUANTITY:6 DF DOSAGE FORM;?
     Route: 048
     Dates: start: 20180510, end: 20180510
  2. ECCHINICAE [Concomitant]
  3. VITAMIN C [Concomitant]
     Active Substance: ASCORBIC ACID

REACTIONS (7)
  - Dyspnoea [None]
  - Throat irritation [None]
  - Swollen tongue [None]
  - Middle insomnia [None]
  - Oropharyngeal pain [None]
  - Pharyngeal oedema [None]
  - Back pain [None]

NARRATIVE: CASE EVENT DATE: 20180510
